FAERS Safety Report 7311374-6 (Version None)
Quarter: 2011Q1

REPORT INFORMATION
  Report Type: 
  Country: None (occurrence: None)
  Receive Date: 20110224
  Receipt Date: 20110210
  Transmission Date: 20110831
  Serious: Yes (Other)
  Sender: FDA-Public Use
  Company Number: US-MYLANLABS-2011S1003002

PATIENT
  Age: 41 Year
  Sex: Female

DRUGS (4)
  1. AMNESTEEM [Suspect]
     Dates: start: 20100806, end: 20110119
  2. AMNESTEEM [Suspect]
     Dates: start: 20100806, end: 20110119
  3. AMNESTEEM [Suspect]
     Dates: start: 20100614, end: 20100701
  4. AMNESTEEM [Suspect]
     Dates: start: 20100614, end: 20100701

REACTIONS (1)
  - DRUG EXPOSURE DURING PREGNANCY [None]
